FAERS Safety Report 5963284-4 (Version None)
Quarter: 2008Q4

REPORT INFORMATION
  Report Type: 
  Country: None (occurrence: None)
  Receive Date: 20081124
  Receipt Date: 20081124
  Transmission Date: 20090506
  Serious: Yes (Other)
  Sender: FDA-Public Use
  Company Number: A0757813A

PATIENT
  Age: 48 Year
  Sex: Female
  Weight: 71 kg

DRUGS (10)
  1. ALLI [Suspect]
  2. UNSPECIFIED MEDICATION [Concomitant]
     Indication: CHRONIC OBSTRUCTIVE PULMONARY DISEASE
  3. PAIN MEDICATION [Concomitant]
  4. DIURETIC [Concomitant]
  5. METHADONE HCL [Concomitant]
  6. FLEXERIL [Concomitant]
  7. KLONOPIN [Concomitant]
  8. TRAZODONE HCL [Concomitant]
  9. PAXIL [Concomitant]
  10. CLONIDINE [Concomitant]

REACTIONS (6)
  - ABDOMINAL PAIN [None]
  - FAECAL INCONTINENCE [None]
  - FAECES DISCOLOURED [None]
  - NAUSEA [None]
  - RECTAL HAEMORRHAGE [None]
  - STEATORRHOEA [None]
